FAERS Safety Report 11965674 (Version 8)
Quarter: 2017Q1

REPORT INFORMATION
  Report Type: Report from Study
  Country: US (occurrence: US)
  Receive Date: 20160127
  Receipt Date: 20170104
  Transmission Date: 20170428
  Serious: Yes (Hospitalization)
  Sender: FDA-Public Use
  Company Number: US-SA-2015SA164385

PATIENT
  Age: 30 Year
  Sex: Female

DRUGS (4)
  1. GABAPENTIN. [Concomitant]
     Active Substance: GABAPENTIN
     Dosage: DOSE: 900 (UNITS UNSPECIFIED)
     Dates: start: 201505
  2. LEMTRADA [Suspect]
     Active Substance: ALEMTUZUMAB
     Indication: MULTIPLE SCLEROSIS
     Route: 041
     Dates: start: 20151005, end: 20151009
  3. PREDNISONE. [Concomitant]
     Active Substance: PREDNISONE
     Indication: ASTHENIA
     Dates: start: 201505
  4. AMPYRA [Concomitant]
     Active Substance: DALFAMPRIDINE
     Indication: GAIT DISTURBANCE
     Dates: start: 201403

REACTIONS (35)
  - Constipation [Not Recovered/Not Resolved]
  - CD4 lymphocytes decreased [Not Recovered/Not Resolved]
  - Fatigue [Not Recovered/Not Resolved]
  - Weight increased [Not Recovered/Not Resolved]
  - Fall [Unknown]
  - Hernia [Unknown]
  - Fall [Recovering/Resolving]
  - Balance disorder [Recovering/Resolving]
  - Vomiting [Not Recovered/Not Resolved]
  - Ill-defined disorder [Recovering/Resolving]
  - Muscular weakness [Recovering/Resolving]
  - Bladder disorder [Recovering/Resolving]
  - Feeling abnormal [Not Recovered/Not Resolved]
  - Skin striae [Not Recovered/Not Resolved]
  - Asthenia [Not Recovered/Not Resolved]
  - Multiple sclerosis relapse [Recovering/Resolving]
  - Nausea [Not Recovered/Not Resolved]
  - Urinary tract infection [Recovering/Resolving]
  - White blood cell count decreased [Recovering/Resolving]
  - Coagulopathy [Recovered/Resolved]
  - Gastrointestinal disorder [Recovering/Resolving]
  - Pollakiuria [Recovering/Resolving]
  - Abdominal pain [Not Recovered/Not Resolved]
  - Feeding disorder [Not Recovered/Not Resolved]
  - Incontinence [Recovering/Resolving]
  - Fatigue [Recovering/Resolving]
  - Infection [Not Recovered/Not Resolved]
  - Hypokinesia [Not Recovered/Not Resolved]
  - Lymphocyte count decreased [Unknown]
  - Thyroid hormones decreased [Not Recovered/Not Resolved]
  - Confusional state [Recovering/Resolving]
  - Bronchitis [Recovered/Resolved]
  - Hypotonia [Not Recovered/Not Resolved]
  - Dehydration [Not Recovered/Not Resolved]
  - Wound [Recovered/Resolved]

NARRATIVE: CASE EVENT DATE: 2015
